FAERS Safety Report 9391197 (Version 1)
Quarter: 2013Q3

REPORT INFORMATION
  Report Type: Spontaneous
  Country: FR (occurrence: None)
  Receive Date: 20130705
  Receipt Date: 20130705
  Transmission Date: 20140515
  Serious: Yes (Death)
  Sender: FDA-Public Use
  Company Number: 2013195083

PATIENT
  Age: 79 Year
  Sex: Female

DRUGS (11)
  1. FRAGMINE (DALTEPARIN SODIUM) SOLUTION FOR INJECTION [Suspect]
     Dosage: 1 DF, 1X/DAY, SC
     Route: 058
     Dates: start: 20130409, end: 20130415
  2. APROVEL [Suspect]
     Dosage: 150 MG, 1X/DAY, PO
     Route: 048
     Dates: end: 20130415
  3. COAPROVEL [Suspect]
     Dosage: 1 DF, 1X/DAY, PO
     Route: 048
     Dates: end: 20130415
  4. TRANXENE [Suspect]
     Dosage: 1 DF, 2X/DAY, ORAL
     Route: 048
     Dates: end: 20130415
  5. VOLTARENE (DICLOFENAC SODIUM) GEL [Concomitant]
  6. SECTRAL (ACEBUTOLOL HYDROCHLORIDE) [Concomitant]
  7. PARACETAMOL (PARACETAMOL) [Concomitant]
  8. AMYCOR (BIFONAZOLE) CREAM [Concomitant]
  9. SMECTA (ALUMINIUM MAGNESIUM SILICATE) [Concomitant]
  10. OXYNORM (OXYCODONE HYDROCHLORIDE) CAPSULE [Concomitant]
  11. PHLOROGLUCINOL/TRIMETHYLPHLOROGLUCINOL (PHLOROGLUCINOL, TRIMETHYLPHLOROGLUCINOL) [Concomitant]

REACTIONS (4)
  - Renal failure acute [None]
  - Dehydration [None]
  - Hyperkalaemia [None]
  - Anaemia [None]
